FAERS Safety Report 25352639 (Version 2)
Quarter: 2025Q2

REPORT INFORMATION
  Report Type: Report from Study
  Country: US (occurrence: US)
  Receive Date: 20250523
  Receipt Date: 20250603
  Transmission Date: 20250716
  Serious: Yes (Other)
  Sender: MALLINCKRODT
  Company Number: US-MALLINCKRODT-MNK202502883

PATIENT
  Age: 54 Year
  Sex: Male

DRUGS (1)
  1. CORTICOTROPIN [Suspect]
     Active Substance: CORTICOTROPIN
     Indication: Optic neuritis
     Dates: start: 20250505, end: 202505

REACTIONS (6)
  - Blood glucose increased [Unknown]
  - Pruritus [Unknown]
  - Sleep apnoea syndrome [Unknown]
  - Condition aggravated [Unknown]
  - Insomnia [Unknown]
  - Dizziness [Unknown]

NARRATIVE: CASE EVENT DATE: 20250501
